FAERS Safety Report 4945250-0 (Version None)
Quarter: 2006Q1

REPORT INFORMATION
  Report Type: 
  Country: None (occurrence: None)
  Receive Date: 20060316
  Receipt Date: 20060306
  Transmission Date: 20060701
  Serious: Yes (Other)
  Sender: FDA-Public Use
  Company Number: PHBS2006ES03500

PATIENT
  Age: 9 Year
  Sex: Female

DRUGS (1)
  1. TEGRETOL [Suspect]
     Indication: EPILEPSY
     Dosage: 500 MG/DAY
     Route: 048
     Dates: start: 20020101

REACTIONS (2)
  - HYPERTROPHY BREAST [None]
  - HYPOTRICHOSIS [None]
